FAERS Safety Report 6140587-4 (Version None)
Quarter: 2009Q2

REPORT INFORMATION
  Report Type: 
  Country: None (occurrence: None)
  Receive Date: 20090402
  Receipt Date: 20090401
  Transmission Date: 20091009
  Serious: Yes (Hospitalization)
  Sender: FDA-Public Use
  Company Number: DE-WYE-G03436909

PATIENT
  Age: 60 Year
  Sex: Female
  Weight: 74 kg

DRUGS (6)
  1. IBUPROFEN [Suspect]
     Indication: PAIN
     Dosage: 400 MG MILLIGRAM(S); 3 DOSAGES IN 1 DAY
     Dates: start: 20081001, end: 20090102
  2. BISOPROLOL [Concomitant]
     Indication: HYPERTENSION
     Dosage: 5 MG MILLIGRAM(S), 2 TABLETS PER DAY
     Route: 048
     Dates: start: 19890101
  3. VALORON [Concomitant]
     Indication: PAIN
     Dosage: 50 MG MILLIGRAM(S), 2 PROLONGED-RELEASE TABLETS PER DAY
     Route: 048
     Dates: start: 20081001
  4. PHENPROCOUMON [Concomitant]
     Indication: ATRIAL FIBRILLATION
     Dosage: 1,5 MILLIGRAM PHENPROCOUMON (FALITHROM/HEXAL FILM COATED TABLET) 1 IN PER DAY
     Route: 048
     Dates: start: 20081014, end: 20090213
  5. CELEBREX [Suspect]
     Indication: PAIN
     Dosage: 100 MG MILLIGRAM(S) 3 HARD CAPSULES IN ONE DAY
     Route: 048
     Dates: start: 20081001, end: 20090102
  6. PANTOPRAZOLE SODIUM [Concomitant]
     Indication: PROPHYLAXIS AGAINST GASTROINTESTINAL ULCER
     Dosage: PANTORPRAZOL SODIUM (PANTOZOL BYK-GULDEN LOMBERG) 40 MG MILLIGRAM, 1 TABLET PER DAY
     Route: 048
     Dates: start: 20081001

REACTIONS (1)
  - COLITIS [None]
